FAERS Safety Report 6383569-X (Version None)
Quarter: 2009Q3

REPORT INFORMATION
  Report Type: 
  Country: None (occurrence: None)
  Receive Date: 20090929
  Receipt Date: 20090929
  Transmission Date: 20100115
  Serious: Yes (Hospitalization)
  Sender: FDA-Public Use
  Company Number: None

PATIENT
  Age: 87 Year
  Sex: Female
  Weight: 40.27 kg

DRUGS (1)
  1. CARBAMAZEPINE [Suspect]
     Dosage: 200 MG BID PO
     Route: 048
     Dates: start: 20090211, end: 20090213

REACTIONS (2)
  - NAUSEA [None]
  - VOMITING [None]
